FAERS Safety Report 16061872 (Version 2)
Quarter: 2019Q1

REPORT INFORMATION
  Report Type: Spontaneous
  Country: JP (occurrence: JP)
  Receive Date: 20190312
  Receipt Date: 20190318
  Transmission Date: 20190418
  Serious: Yes (Death, Life-Threatening, Hospitalization, Other)
  Sender: FDA-Public Use
  Company Number: JP-ACCORD-112052

PATIENT
  Age: 76 Year
  Sex: Female

DRUGS (3)
  1. CELECOXIB. [Suspect]
     Active Substance: CELECOXIB
     Indication: RHEUMATOID ARTHRITIS
  2. METHOTREXATE. [Suspect]
     Active Substance: METHOTREXATE
     Indication: RHEUMATOID ARTHRITIS
  3. PREDNISOLONE. [Suspect]
     Active Substance: PREDNISOLONE
     Indication: RHEUMATOID ARTHRITIS

REACTIONS (7)
  - Acidosis [Unknown]
  - Haemophagocytic lymphohistiocytosis [Recovering/Resolving]
  - Clostridium difficile infection [Recovered/Resolved]
  - Cellulitis [Recovering/Resolving]
  - Megacolon [Recovering/Resolving]
  - Cryptococcosis [Recovering/Resolving]
  - Renal failure [Fatal]
